FAERS Safety Report 10145660 (Version 1)
Quarter: 2014Q2

REPORT INFORMATION
  Report Type: Spontaneous
  Country: US (occurrence: US)
  Receive Date: 20140501
  Receipt Date: 20140501
  Transmission Date: 20141212
  Serious: No
  Sender: FDA-Public Use
  Company Number: US-ABBVIE-13P-163-1178245-00

PATIENT
  Age: 70 Year
  Sex: Female

DRUGS (2)
  1. CREON [Suspect]
     Indication: GASTRIC DISORDER
     Dosage: WITH EACH MEAL
     Dates: start: 20131209
  2. COMPOUNDED PORCINE THYROID [Concomitant]
     Indication: HYPOTHYROIDISM

REACTIONS (1)
  - Oropharyngeal pain [Not Recovered/Not Resolved]
